FAERS Safety Report 4662606-4 (Version None)
Quarter: 2005Q2

REPORT INFORMATION
  Report Type: 
  Country: None (occurrence: None)
  Receive Date: 20050512
  Receipt Date: 20050425
  Transmission Date: 20051028
  Serious: Yes (Death, Other)
  Sender: FDA-Public Use
  Company Number: CA_050408062

PATIENT
  Age: 66 Year
  Sex: Male

DRUGS (1)
  1. PERGOLIDE MESYLATE [Suspect]
     Indication: RESTLESS LEGS SYNDROME

REACTIONS (3)
  - CHEST PAIN [None]
  - MESOTHELIOMA [None]
  - PLEURAL FIBROSIS [None]
